FAERS Safety Report 18544001 (Version 1)
Quarter: 2020Q4

REPORT INFORMATION
  Report Type: Spontaneous
  Country: GB (occurrence: GB)
  Receive Date: 20201124
  Receipt Date: 20201124
  Transmission Date: 20210114
  Serious: Yes (Other)
  Sender: FDA-Public Use
  Company Number: GB-JNJFOC-20201123080

PATIENT
  Age: 84 Year
  Sex: Male
  Weight: 89 kg

DRUGS (9)
  1. ATORVASTATIN [Concomitant]
     Active Substance: ATORVASTATIN
  2. HYDROMOL [SODIUM PIDOLATE] [Concomitant]
  3. XARELTO [Suspect]
     Active Substance: RIVAROXABAN
     Indication: CEREBROVASCULAR ACCIDENT PROPHYLAXIS
     Dosage: 20 MG, QD
     Route: 048
     Dates: start: 20181101, end: 20191022
  4. BISOPROLOL FUMARATE. [Concomitant]
     Active Substance: BISOPROLOL FUMARATE
  5. DERMOVATE [Concomitant]
     Active Substance: CLOBETASOL
  6. LYMECYCLINE [Concomitant]
     Active Substance: LYMECYCLINE
  7. NICOTINAMIDE [Concomitant]
     Active Substance: NIACINAMIDE
  8. WARFARIN [Concomitant]
     Active Substance: WARFARIN
  9. RAMIPRIL. [Concomitant]
     Active Substance: RAMIPRIL

REACTIONS (1)
  - Pemphigoid [Not Recovered/Not Resolved]

NARRATIVE: CASE EVENT DATE: 20181107
